FAERS Safety Report 9462737 (Version 1)
Quarter: 2013Q3

REPORT INFORMATION
  Report Type: Spontaneous
  Country: SI (occurrence: SI)
  Receive Date: 20130816
  Receipt Date: 20130816
  Transmission Date: 20140515
  Serious: Yes (Hospitalization, Other)
  Sender: FDA-Public Use
  Company Number: SI-ROXANE LABORATORIES, INC.-2013-RO-01337RO

PATIENT
  Age: 77 Year
  Sex: Female

DRUGS (9)
  1. METHOTREXATE [Suspect]
     Indication: PSORIATIC ARTHROPATHY
     Dates: start: 1998
  2. METHOTREXATE [Suspect]
     Dosage: 7.5 MG
  3. METHOTREXATE [Suspect]
  4. CALCIUM CARBONATE [Suspect]
  5. ENALAPRIL [Suspect]
  6. BISOPROLOL [Suspect]
  7. ACETYLSALICYLIC ACID [Suspect]
  8. PANTOPRAZOLE [Suspect]
  9. METILPREDNIZOLON [Suspect]

REACTIONS (3)
  - Pancytopenia [Recovered/Resolved]
  - Macrocytosis [Unknown]
  - Hepatic enzyme increased [Recovered/Resolved]
